FAERS Safety Report 8213311-9 (Version None)
Quarter: 2012Q1

REPORT INFORMATION
  Report Type: 
  Country: None (occurrence: None)
  Receive Date: 20120315
  Receipt Date: 20120307
  Transmission Date: 20120608
  Serious: Yes (Life-Threatening, Hospitalization)
  Sender: FDA-Public Use
  Company Number: PHHO2010BE03104

PATIENT
  Sex: Male
  Weight: 73 kg

DRUGS (2)
  1. EVEROLIMUS [Suspect]
     Indication: LIVER TRANSPLANT
     Dosage: 2MG/DAY
     Route: 048
     Dates: start: 20080812
  2. TACROLIMUS [Suspect]
     Indication: LIVER TRANSPLANT
     Dosage: 2MG/DAY
     Route: 048
     Dates: start: 20080718

REACTIONS (3)
  - CONCOMITANT DISEASE PROGRESSION [None]
  - ARTERIOSCLEROSIS CORONARY ARTERY [None]
  - ANGINA PECTORIS [None]
